FAERS Safety Report 24176371 (Version 18)
Quarter: 2025Q1

REPORT INFORMATION
  Report Type: Report from Study
  Country: ZA (occurrence: ZA)
  Receive Date: 20240806
  Receipt Date: 20250327
  Transmission Date: 20250408
  Serious: Yes (Hospitalization, Disabling, Other)
  Sender: CELLTRION
  Company Number: ZA-ADCOCK INGRAM-2024ZA017806

PATIENT

DRUGS (13)
  1. INFLIXIMAB-DYYB [Suspect]
     Active Substance: INFLIXIMAB-DYYB
     Indication: Crohn^s disease
     Route: 042
     Dates: start: 20240716
  2. INFLIXIMAB-DYYB [Suspect]
     Active Substance: INFLIXIMAB-DYYB
     Dates: start: 20241023
  3. INFLIXIMAB-DYYB [Suspect]
     Active Substance: INFLIXIMAB-DYYB
  4. INFLIXIMAB-DYYB [Suspect]
     Active Substance: INFLIXIMAB-DYYB
     Dosage: 600MG INTRAVENOUS INFUSION AT 4 WEEKLY INTERVALS
     Route: 042
     Dates: start: 20250108
  5. INFLIXIMAB-DYYB [Suspect]
     Active Substance: INFLIXIMAB-DYYB
     Dosage: 600 MG, Q4WEEKS
     Route: 042
     Dates: start: 20250131
  6. INFLIXIMAB-DYYB [Suspect]
     Active Substance: INFLIXIMAB-DYYB
     Dosage: 600 MG 4 WEEKLY INTERVALS
     Route: 042
  7. ACETAMINOPHEN [Concomitant]
     Active Substance: ACETAMINOPHEN
  8. PREDNISONE [Concomitant]
     Active Substance: PREDNISONE
  9. PREDNISONE [Concomitant]
     Active Substance: PREDNISONE
  10. PREDNISONE [Concomitant]
     Active Substance: PREDNISONE
     Dates: end: 20250107
  11. PREDNISONE [Concomitant]
     Active Substance: PREDNISONE
  12. METHOTREXATE [Concomitant]
     Active Substance: METHOTREXATE
  13. METHOTREXATE [Concomitant]
     Active Substance: METHOTREXATE

REACTIONS (35)
  - Crohn^s disease [Not Recovered/Not Resolved]
  - Uveitis [Not Recovered/Not Resolved]
  - Iron deficiency anaemia [Unknown]
  - Clostridium difficile infection [Recovering/Resolving]
  - Infection [Unknown]
  - Fatigue [Recovered/Resolved]
  - Stoma site pain [Recovering/Resolving]
  - Malaise [Unknown]
  - Drug level decreased [Unknown]
  - Cyst [Recovering/Resolving]
  - Weight increased [Unknown]
  - Eye discharge [Unknown]
  - Ocular hyperaemia [Recovering/Resolving]
  - Influenza [Recovered/Resolved]
  - Rash pustular [Unknown]
  - Hot flush [Recovered/Resolved with Sequelae]
  - Night sweats [Recovered/Resolved with Sequelae]
  - Pain in extremity [Unknown]
  - Headache [Unknown]
  - Fatigue [Unknown]
  - Diarrhoea [Unknown]
  - Arthralgia [Unknown]
  - Pyrexia [Unknown]
  - Nasopharyngitis [Unknown]
  - Pallor [Recovered/Resolved]
  - Hyperhidrosis [Unknown]
  - Therapeutic response shortened [Not Recovered/Not Resolved]
  - Intentional product use issue [Unknown]
  - Underdose [Unknown]
  - Product preparation error [Unknown]
  - Incorrect dose administered [Unknown]
  - Therapeutic response decreased [Unknown]
  - Expired product administered [Unknown]
  - Intentional product use issue [Unknown]
  - Treatment failure [Not Recovered/Not Resolved]

NARRATIVE: CASE EVENT DATE: 20240716
